FAERS Safety Report 15333892 (Version 1)
Quarter: 2018Q3

REPORT INFORMATION
  Report Type: Spontaneous
  Country: US (occurrence: US)
  Receive Date: 20180825
  Receipt Date: 20180825
  Transmission Date: 20181010
  Serious: Yes (Other)
  Sender: FDA-Public Use
  Company Number: None

PATIENT
  Age: 69 Year
  Sex: Female
  Weight: 69.75 kg

DRUGS (5)
  1. LIPITOR [Concomitant]
     Active Substance: ATORVASTATIN CALCIUM
  2. LUMIGAN [Suspect]
     Active Substance: BIMATOPROST
     Indication: OCULAR HYPERTENSION
     Dosage: ?          QUANTITY:1 GTT DROP(S);?
     Route: 047
     Dates: start: 20171212, end: 20180806
  3. CENTRUM SILVER VITAMINS [Concomitant]
  4. COQ10 [Concomitant]
     Active Substance: UBIDECARENONE
  5. LANTAPROST [Concomitant]

REACTIONS (4)
  - Eye discharge [None]
  - Migraine with aura [None]
  - Impaired driving ability [None]
  - Eye pain [None]

NARRATIVE: CASE EVENT DATE: 20180110
